FAERS Safety Report 20481290 (Version 1)
Quarter: 2022Q1

REPORT INFORMATION
  Report Type: Report from Study
  Country: FR (occurrence: None)
  Receive Date: 20220216
  Receipt Date: 20220216
  Transmission Date: 20220423
  Serious: Yes (Other)
  Sender: FDA-Public Use
  Company Number: FR-Merck Healthcare KGaA-9298244

PATIENT
  Sex: Female

DRUGS (6)
  1. LEVOTHYROXINE [Suspect]
     Active Substance: LEVOTHYROXINE
     Indication: Autoimmune thyroiditis
  2. MEDROL [Concomitant]
     Active Substance: METHYLPREDNISOLONE
     Indication: Fatigue
  3. ESTRADIOL [Concomitant]
     Active Substance: ESTRADIOL
     Indication: Product used for unknown indication
  4. UTROGESTAN [Concomitant]
     Active Substance: PROGESTERONE
     Indication: Product used for unknown indication
  5. TESTOSTERONE [Concomitant]
     Active Substance: TESTOSTERONE
     Indication: Product used for unknown indication
  6. PRASTERONE [Concomitant]
     Active Substance: PRASTERONE
     Indication: Product used for unknown indication

REACTIONS (14)
  - Glucocorticoid deficiency [Unknown]
  - Insomnia [Unknown]
  - Hyperhidrosis [Unknown]
  - Hot flush [Unknown]
  - Blood thyroid stimulating hormone decreased [Unknown]
  - Hypertension [Unknown]
  - Fluid retention [Unknown]
  - Swelling [Unknown]
  - Food craving [Unknown]
  - Salt craving [Unknown]
  - Adrenal disorder [Unknown]
  - Weight increased [Unknown]
  - Hair growth abnormal [Unknown]
  - Agitation [Unknown]
